FAERS Safety Report 11513015 (Version 1)
Quarter: 2015Q3

REPORT INFORMATION
  Report Type: Spontaneous
  Country: JP (occurrence: JP)
  Receive Date: 20150916
  Receipt Date: 20150916
  Transmission Date: 20151125
  Serious: Yes (Hospitalization)
  Sender: FDA-Public Use
  Company Number: JP-NOVOPROD-463383

PATIENT
  Age: 78 Year
  Sex: Female

DRUGS (2)
  1. NOVORAPID [Suspect]
     Active Substance: INSULIN ASPART
     Dosage: 6 IU, QD (EACH 3IU IN THE MORNING AND IN THE EVENING)
     Route: 058
  2. NOVORAPID [Suspect]
     Active Substance: INSULIN ASPART
     Indication: DIABETES MELLITUS
     Dosage: 8 IU, QD (EACH 4 IU IN THE MORNING AND EVENING)
     Route: 058

REACTIONS (6)
  - Hyperhidrosis [Unknown]
  - Pyelonephritis acute [Unknown]
  - Hypoglycaemia [Unknown]
  - Rib fracture [Unknown]
  - Dry skin [Unknown]
  - Weight decreased [Unknown]
